FAERS Safety Report 8063174-X (Version None)
Quarter: 2012Q1

REPORT INFORMATION
  Report Type: 
  Country: None (occurrence: None)
  Receive Date: 20120123
  Receipt Date: 20120110
  Transmission Date: 20120608
  Serious: Yes (Other)
  Sender: FDA-Public Use
  Company Number: PHHY2011CA113603

PATIENT
  Sex: Female

DRUGS (1)
  1. ALISKIREN [Suspect]
     Indication: HYPERTENSION
     Dosage: 150 MG, UNK
     Route: 048
     Dates: start: 20100901, end: 20110930

REACTIONS (5)
  - BLOOD PRESSURE INCREASED [None]
  - TACHYCARDIA [None]
  - HYDRONEPHROSIS [None]
  - ANXIETY [None]
  - DRUG INEFFECTIVE [None]
